FAERS Safety Report 6594108-2 (Version None)
Quarter: 2010Q1

REPORT INFORMATION
  Report Type: 
  Country: None (occurrence: None)
  Receive Date: 20100222
  Receipt Date: 20100218
  Transmission Date: 20100710
  Serious: Yes (Death)
  Sender: FDA-Public Use
  Company Number: US-SANOFI-AVENTIS-2010SA009519

PATIENT
  Age: 68 Year
  Sex: Male

DRUGS (1)
  1. LOVENOX [Suspect]
     Route: 058
     Dates: start: 20090128, end: 20090207

REACTIONS (3)
  - CARDIAC ARREST [None]
  - DYSPNOEA [None]
  - PULMONARY EMBOLISM [None]
